FAERS Safety Report 6054731-0 (Version None)
Quarter: 2009Q1

REPORT INFORMATION
  Report Type: 
  Country: None (occurrence: None)
  Receive Date: 20090128
  Receipt Date: 20090122
  Transmission Date: 20090719
  Serious: Yes (Hospitalization)
  Sender: FDA-Public Use
  Company Number: JP-BRISTOL-MYERS SQUIBB COMPANY-14383020

PATIENT
  Age: 64 Year
  Sex: Male

DRUGS (4)
  1. RESLIN [Suspect]
     Indication: ADJUSTMENT DISORDER
     Route: 048
     Dates: start: 20070101
  2. SULPIRIDE [Suspect]
     Indication: ADJUSTMENT DISORDER
     Dates: start: 20070101
  3. BEZAFIBRATE [Suspect]
     Indication: HYPERTRIGLYCERIDAEMIA
     Dates: start: 20071130
  4. BEZAFIBRATE [Suspect]
     Indication: ALCOHOLISM
     Dates: start: 20071130

REACTIONS (2)
  - INAPPROPRIATE ANTIDIURETIC HORMONE SECRETION [None]
  - RHABDOMYOLYSIS [None]
